FAERS Safety Report 5574869-1 (Version None)
Quarter: 2007Q4

REPORT INFORMATION
  Report Type: 
  Country: None (occurrence: None)
  Receive Date: 20071227
  Receipt Date: 20071218
  Transmission Date: 20080405
  Serious: Yes (Death)
  Sender: FDA-Public Use
  Company Number: JP-BRISTOL-MYERS SQUIBB COMPANY-14021349

PATIENT
  Age: 7 Decade
  Sex: Male

DRUGS (4)
  1. VEPESID [Suspect]
     Indication: ACUTE MYELOID LEUKAEMIA
     Route: 041
  2. CYTARABINE [Concomitant]
     Route: 041
  3. NOVANTRONE [Concomitant]
     Route: 041
  4. PREDNISOLONE [Concomitant]
     Route: 042

REACTIONS (3)
  - CEREBRAL HAEMORRHAGE [None]
  - SEPSIS [None]
  - WHITE BLOOD CELL COUNT DECREASED [None]
